FAERS Safety Report 6826989-9 (Version None)
Quarter: 2010Q2

REPORT INFORMATION
  Report Type: 
  Country: None (occurrence: None)
  Receive Date: 20100520
  Receipt Date: 20090408
  Transmission Date: 20101027
  Serious: Yes (Other)
  Sender: FDA-Public Use
  Company Number: 2009196846

PATIENT
  Age: 59 Year
  Sex: Female
  Weight: 77 kg

DRUGS (5)
  1. PROVERA [Suspect]
     Indication: HORMONE REPLACEMENT THERAPY
     Dosage: 2.5-10MG, ORAL
     Route: 048
     Dates: start: 19930713, end: 20001019
  2. PREMARIN [Suspect]
     Indication: HORMONE REPLACEMENT THERAPY
     Dates: start: 19930713, end: 20001019
  3. PREMPRO [Suspect]
     Indication: HORMONE REPLACEMENT THERAPY
     Dates: start: 20001019, end: 20020315
  4. ZIAC [Concomitant]
  5. BISOPROLOL FUMARATE [Concomitant]

REACTIONS (1)
  - BREAST CANCER FEMALE [None]
